FAERS Safety Report 8235907-0 (Version None)
Quarter: 2012Q1

REPORT INFORMATION
  Report Type: 
  Country: None (occurrence: None)
  Receive Date: 20120326
  Receipt Date: 20120319
  Transmission Date: 20120608
  Serious: Yes (Hospitalization)
  Sender: FDA-Public Use
  Company Number: US-PFIZER INC-2012072470

PATIENT
  Sex: Male

DRUGS (2)
  1. ONFI [Interacting]
     Indication: CONVULSION
     Dosage: UNK
  2. DILANTIN-125 [Suspect]
     Indication: CONVULSION
     Dosage: UNK

REACTIONS (4)
  - HYPOTENSION [None]
  - LETHARGY [None]
  - CONVULSION [None]
  - DRUG INTERACTION [None]
